FAERS Safety Report 19855419 (Version 1)
Quarter: 2021Q3

REPORT INFORMATION
  Report Type: Report from Study
  Country: CA (occurrence: CA)
  Receive Date: 20210920
  Receipt Date: 20210920
  Transmission Date: 20211014
  Serious: Yes (Other)
  Sender: FDA-Public Use
  Company Number: CA-ACCORD-239178

PATIENT
  Age: 23 Year
  Sex: Female

DRUGS (2)
  1. CITALOPRAM [Suspect]
     Active Substance: CITALOPRAM HYDROBROMIDE
     Indication: PRODUCT USED FOR UNKNOWN INDICATION
     Dosage: 1 EVERY 1 WEEKS
  2. QUETIAPINE. [Suspect]
     Active Substance: QUETIAPINE
     Indication: PRODUCT USED FOR UNKNOWN INDICATION
     Route: 048

REACTIONS (11)
  - Depression [Unknown]
  - Pressure of speech [Unknown]
  - Agitation [Unknown]
  - Bipolar II disorder [Unknown]
  - Hypomania [Unknown]
  - Weight increased [Unknown]
  - Disease progression [Unknown]
  - Energy increased [Unknown]
  - Insomnia [Unknown]
  - Irritability [Unknown]
  - Tachyphrenia [Unknown]
